FAERS Safety Report 23566035 (Version 1)
Quarter: 2024Q1

REPORT INFORMATION
  Report Type: Spontaneous
  Country: US (occurrence: None)
  Receive Date: 20240225
  Receipt Date: 20240225
  Transmission Date: 20240409
  Serious: Yes (unspecified)
  Sender: FDA-Public Use
  Company Number: None

PATIENT
  Age: 74 Year
  Sex: Female
  Weight: 65.7 kg

DRUGS (1)
  1. XIIDRA [Suspect]
     Active Substance: LIFITEGRAST
     Indication: Dry eye
     Dosage: 1 GTT DROP TWICE A DAY OPHTHALMIC?
     Route: 047
     Dates: start: 20240224, end: 20240224

REACTIONS (3)
  - Eye irritation [None]
  - Vision blurred [None]
  - Eye irritation [None]

NARRATIVE: CASE EVENT DATE: 20240224
